FAERS Safety Report 25469022 (Version 5)
Quarter: 2025Q4

REPORT INFORMATION
  Report Type: Report from Study
  Country: US (occurrence: US)
  Receive Date: 20250623
  Receipt Date: 20251021
  Transmission Date: 20260118
  Serious: Yes (Hospitalization, Other)
  Sender: TAIHO ONCOLOGY INC
  Company Number: US-TAIHOP-2025-005592

PATIENT
  Age: 81 Year
  Sex: Female

DRUGS (1)
  1. INQOVI [Suspect]
     Active Substance: CEDAZURIDINE\DECITABINE
     Indication: Myelodysplastic syndrome
     Dosage: 135 MG (35 MG DECITABINE AND 100 MG CEDAZURIDINE) ON DAYS 1-5 OF EACH 28 DAY CYCLE; CYCLE UNKNOWN
     Route: 048
     Dates: start: 20210531

REACTIONS (8)
  - Herpes zoster [Unknown]
  - Cellulitis [Unknown]
  - Clostridium difficile colitis [Unknown]
  - Neutropenia [Unknown]
  - Anaemia [Unknown]
  - Dry eye [Unknown]
  - Diarrhoea [Unknown]
  - Asthenia [Unknown]
